FAERS Safety Report 18143499 (Version 6)
Quarter: 2020Q4

REPORT INFORMATION
  Report Type: Spontaneous
  Country: US (occurrence: US)
  Receive Date: 20200813
  Receipt Date: 20201015
  Transmission Date: 20210113
  Serious: Yes (Other)
  Sender: FDA-Public Use
  Company Number: US-AMGEN-USASP2020128876

PATIENT
  Age: 53 Year
  Sex: Female
  Weight: 83.2 kg

DRUGS (3)
  1. CYCLOPHOSPHAMIDE. [Concomitant]
     Active Substance: CYCLOPHOSPHAMIDE
     Dosage: UNK
  2. ADRIAMYCIN [Concomitant]
     Active Substance: DOXORUBICIN HYDROCHLORIDE
     Dosage: UNK
  3. NEULASTA [Suspect]
     Active Substance: PEGFILGRASTIM
     Indication: PROPHYLAXIS
     Dosage: 6 MILLIGRAM
     Route: 065
     Dates: start: 20191015

REACTIONS (2)
  - Neutropenia [Recovered/Resolved]
  - Device use error [Unknown]

NARRATIVE: CASE EVENT DATE: 20191112
